FAERS Safety Report 5673749-0 (Version None)
Quarter: 2008Q1

REPORT INFORMATION
  Report Type: 
  Country: None (occurrence: None)
  Receive Date: 20080319
  Receipt Date: 20080307
  Transmission Date: 20080703
  Serious: Yes (Disabling)
  Sender: FDA-Public Use
  Company Number: GB-PFIZER INC-2008018422

PATIENT
  Sex: Female
  Weight: 73 kg

DRUGS (1)
  1. CHAMPIX [Suspect]
     Route: 048

REACTIONS (1)
  - EAR INFECTION [None]
